FAERS Safety Report 7956264-0 (Version None)
Quarter: 2011Q4

REPORT INFORMATION
  Report Type: 
  Country: None (occurrence: None)
  Receive Date: 20111205
  Receipt Date: 20111124
  Transmission Date: 20120403
  Serious: Yes (Other)
  Sender: FDA-Public Use
  Company Number: GB-RANBAXY-2011R1-50789

PATIENT
  Age: 38 Year
  Sex: Female

DRUGS (12)
  1. FLUOXETINE [Suspect]
     Indication: PRODUCT USED FOR UNKNOWN INDICATION
     Dosage: 20 MG, QD
     Route: 065
     Dates: start: 20101018, end: 20110831
  2. TOPAMAX [Suspect]
     Dosage: 50 MG, QD
     Route: 048
     Dates: start: 20110830, end: 20110830
  3. TOPAMAX [Suspect]
     Dosage: 50 MG, BID
     Route: 048
     Dates: start: 20100915, end: 20100915
  4. TOPAMAX [Suspect]
     Dosage: 150MG, 1 DAYS (50MG TWICE A DAY AND 25MG TWICE A DAY)
     Route: 048
     Dates: start: 20091130, end: 20100623
  5. KEPPRA [Concomitant]
     Dosage: 250 MG, BID
     Route: 065
     Dates: start: 20110831
  6. TOPAMAX [Suspect]
     Dosage: 150MG, 1 DAYS (50MG TWICE A DAY AND 25MG TWICE A DAY)
     Route: 048
     Dates: start: 20091130, end: 20100623
  7. CLONAZEPAM [Concomitant]
     Indication: PRODUCT USED FOR UNKNOWN INDICATION
     Dosage: 2000 UG, QD
     Route: 065
     Dates: start: 20100915
  8. FOLIC ACID [Concomitant]
     Indication: PRODUCT USED FOR UNKNOWN INDICATION
     Dosage: 5 MG, QD
     Route: 065
     Dates: start: 20091130
  9. KEPPRA [Concomitant]
     Indication: PRODUCT USED FOR UNKNOWN INDICATION
     Dosage: 250 MG, QD
     Route: 065
     Dates: start: 20110727
  10. CLONAZEPAM [Concomitant]
     Dosage: 1000 UG, BID
     Route: 065
     Dates: start: 20091130
  11. TOPAMAX [Suspect]
     Indication: EPILEPSY
     Dosage: UNK
     Route: 048
     Dates: start: 20070703
  12. TOPAMAX [Suspect]
     Dosage: 100 MG, BID
     Route: 048
     Dates: start: 20101025

REACTIONS (11)
  - MOOD SWINGS [None]
  - FEELING ABNORMAL [None]
  - PARAESTHESIA [None]
  - SOMNOLENCE [None]
  - ABDOMINAL PAIN UPPER [None]
  - WEIGHT DECREASED [None]
  - DEPRESSION [None]
  - IRRITABLE BOWEL SYNDROME [None]
  - PALPITATIONS [None]
  - TOOTH LOSS [None]
  - DIARRHOEA [None]
